FAERS Safety Report 6228142-9 (Version None)
Quarter: 2009Q2

REPORT INFORMATION
  Report Type: 
  Country: None (occurrence: None)
  Receive Date: 20090610
  Receipt Date: 20090610
  Transmission Date: 20091009
  Serious: No
  Sender: FDA-Public Use
  Company Number: None

PATIENT
  Sex: Male
  Weight: 17 kg

DRUGS (1)
  1. WARFARIN SODIUM [Suspect]
     Indication: CATHETER THROMBOSIS
     Dosage: 2 MG DAILY PO
     Route: 048
     Dates: start: 20090430, end: 20090519

REACTIONS (3)
  - DRUG HYPERSENSITIVITY [None]
  - RASH PRURITIC [None]
  - URTICARIA [None]
